FAERS Safety Report 24050536 (Version 2)
Quarter: 2024Q3

REPORT INFORMATION
  Report Type: Spontaneous
  Country: CH (occurrence: CH)
  Receive Date: 20240704
  Receipt Date: 20240723
  Transmission Date: 20241016
  Serious: Yes (Hospitalization)
  Sender: TEVA
  Company Number: CH-TEVA-VS-3215461

PATIENT
  Age: 9 Year
  Sex: Female

DRUGS (2)
  1. LAMOTRIGINE [Suspect]
     Active Substance: LAMOTRIGINE
     Indication: Jeavons syndrome
     Dosage: RECEIVED FOR TWO WEEKS
     Route: 065
  2. VALPROATE [Suspect]
     Active Substance: VALPROIC ACID
     Indication: Jeavons syndrome
     Dosage: RECEIVED FOR THREE YEARS
     Route: 065

REACTIONS (6)
  - Drug reaction with eosinophilia and systemic symptoms [Unknown]
  - Thrombocytopenia [Unknown]
  - Renal failure [Unknown]
  - Pulmonary oedema [Unknown]
  - Hepatic failure [Unknown]
  - Pleural effusion [Unknown]
